FAERS Safety Report 5446452-X (Version None)
Quarter: 2007Q3

REPORT INFORMATION
  Report Type: 
  Country: None (occurrence: None)
  Receive Date: 20070907
  Receipt Date: 20070827
  Transmission Date: 20080115
  Serious: Yes (Hospitalization)
  Sender: FDA-Public Use
  Company Number: US-JNJFOC-20070805534

PATIENT
  Sex: Male
  Weight: 25.7 kg

DRUGS (8)
  1. INFLIXIMAB [Suspect]
     Route: 042
  2. INFLIXIMAB [Suspect]
     Dosage: 2 PRIOR INFUSIONS ON UNKNOWN DATES
     Route: 042
  3. INFLIXIMAB [Suspect]
     Indication: INFLAMMATORY BOWEL DISEASE
     Dosage: 2 DOSES ON UNKNOWN DATES
     Route: 042
  4. 5-ASA [Concomitant]
  5. 6MP [Concomitant]
  6. PREDNISONE [Concomitant]
     Dosage: 30 MG DAILY FOR ONE WEEK THEN TAPER DOSE
  7. FERROUS SULFATE TAB [Concomitant]
  8. ZANTAC 150 [Concomitant]

REACTIONS (2)
  - COLITIS [None]
  - CONDITION AGGRAVATED [None]
